FAERS Safety Report 5048776-7 (Version None)
Quarter: 2006Q3

REPORT INFORMATION
  Report Type: 
  Country: None (occurrence: None)
  Receive Date: 20060706
  Receipt Date: 20060626
  Transmission Date: 20061208
  Serious: Yes (Other)
  Sender: FDA-Public Use
  Company Number: 14304

PATIENT
  Age: 64 Year
  Sex: Male

DRUGS (6)
  1. FLUOROURACIL [Suspect]
     Indication: GASTRIC CANCER RECURRENT
  2. FLUOROURACIL [Suspect]
     Indication: GASTRIC CANCER RECURRENT
  3. LEUCOVORIN CALCIUM [Suspect]
     Indication: GASTRIC CANCER RECURRENT
  4. LEUCOVORIN CALCIUM [Suspect]
     Indication: GASTRIC CANCER RECURRENT
  5. ELOXATIN [Suspect]
     Indication: GASTRIC CANCER RECURRENT
  6. ELOXATIN [Suspect]
     Indication: GASTRIC CANCER RECURRENT

REACTIONS (8)
  - ABDOMINAL PAIN UPPER [None]
  - ANOREXIA [None]
  - ASTHENIA [None]
  - CRYPTOGENIC ORGANISING PNEUMONIA [None]
  - EMPHYSEMA [None]
  - GENERAL PHYSICAL CONDITION NORMAL [None]
  - PULMONARY FIBROSIS [None]
  - WEIGHT DECREASED [None]
